FAERS Safety Report 16471453 (Version 2)
Quarter: 2020Q3

REPORT INFORMATION
  Report Type: Report from Study
  Country: US (occurrence: US)
  Receive Date: 20190624
  Receipt Date: 20200709
  Transmission Date: 20201102
  Serious: Yes (Other)
  Sender: FDA-Public Use
  Company Number: PHHY2018US081267

PATIENT
  Age: 36 Year
  Sex: Female

DRUGS (1)
  1. GILENYA [Suspect]
     Active Substance: FINGOLIMOD HYDROCHLORIDE
     Indication: MULTIPLE SCLEROSIS
     Dosage: QD
     Route: 048

REACTIONS (8)
  - Skin abrasion [Recovered/Resolved]
  - Lymphocyte count decreased [Unknown]
  - Back pain [Recovered/Resolved]
  - Burning sensation [Recovered/Resolved]
  - Alanine aminotransferase increased [Unknown]
  - Viral upper respiratory tract infection [Not Recovered/Not Resolved]
  - Contusion [Recovered/Resolved]
  - White blood cell count decreased [Unknown]

NARRATIVE: CASE EVENT DATE: 20180330
